FAERS Safety Report 6143061-4 (Version None)
Quarter: 2009Q2

REPORT INFORMATION
  Report Type: 
  Country: None (occurrence: None)
  Receive Date: 20090401
  Receipt Date: 20090317
  Transmission Date: 20091009
  Serious: Yes (Other)
  Sender: FDA-Public Use
  Company Number: CHPA2009US07045

PATIENT
  Age: 27 Year
  Sex: Male

DRUGS (1)
  1. THERAFLU COLD AND COUGH (NCH) (DEXTROMETHORPHAN, PHENIRAMINE, PHENLEPH [Suspect]
     Dosage: 1DF, ONCE/SINGLE, ORAL
     Route: 048
     Dates: start: 20090317, end: 20090317

REACTIONS (4)
  - BLINDNESS [None]
  - MALAISE [None]
  - VISION BLURRED [None]
  - VOMITING [None]
